FAERS Safety Report 18049080 (Version 2)
Quarter: 2022Q1

REPORT INFORMATION
  Report Type: Spontaneous
  Country: US (occurrence: US)
  Receive Date: 20200721
  Receipt Date: 20220321
  Transmission Date: 20220423
  Serious: No
  Sender: FDA-Public Use
  Company Number: US-PFIZER INC-2020265425

PATIENT
  Age: 79 Year
  Sex: Female
  Weight: 58.97 kg

DRUGS (5)
  1. IBRANCE [Suspect]
     Active Substance: PALBOCICLIB
     Indication: Breast cancer metastatic
     Dosage: 125 MG
  2. IBRANCE [Suspect]
     Active Substance: PALBOCICLIB
     Dosage: 75 MG, CYCLIC  (21 DAYS ON AND 7 DAYS OFF)
     Route: 048
     Dates: start: 20210101
  3. ENTECAVIR [Concomitant]
     Active Substance: ENTECAVIR
     Indication: Hepatitis
     Dosage: 0.5 MG, DAILY (ON AN EMPTY STOMACH)
     Dates: start: 2018
  4. LEVOTHYROXINE [Concomitant]
     Active Substance: LEVOTHYROXINE
     Dosage: 100 UG, 1X/DAY(100MCG, ONCE A DAY   )
  5. LETROZOLE [Concomitant]
     Active Substance: LETROZOLE
     Dosage: 2.5 MG, 1X/DAY
     Route: 048

REACTIONS (4)
  - White blood cell count abnormal [Unknown]
  - Product dispensing error [Unknown]
  - Product dose omission issue [Unknown]
  - Intentional product misuse [Unknown]
